FAERS Safety Report 22901225 (Version 2)
Quarter: 2023Q4

REPORT INFORMATION
  Report Type: Report from Study
  Country: FR (occurrence: FR)
  Receive Date: 20230904
  Receipt Date: 20231009
  Transmission Date: 20240110
  Serious: Yes (Other)
  Sender: FDA-Public Use
  Company Number: FR-JNJFOC-20230870945

PATIENT
  Age: 36 Year
  Sex: Male

DRUGS (3)
  1. SPRAVATO [Suspect]
     Active Substance: ESKETAMINE
     Indication: Depression
     Dates: start: 20230628, end: 20230704
  2. SPRAVATO [Suspect]
     Active Substance: ESKETAMINE
     Indication: Borderline personality disorder
     Dates: start: 20230704, end: 20230710
  3. SPRAVATO [Suspect]
     Active Substance: ESKETAMINE
     Dates: start: 20230710, end: 20230718

REACTIONS (5)
  - Suicidal ideation [Recovered/Resolved]
  - Apathy [Recovered/Resolved]
  - Morbid thoughts [Recovered/Resolved]
  - Anxiety [Recovered/Resolved]
  - Fatigue [Recovered/Resolved]

NARRATIVE: CASE EVENT DATE: 20230703
